FAERS Safety Report 7568296-5 (Version None)
Quarter: 2011Q2

REPORT INFORMATION
  Report Type: 
  Country: None (occurrence: None)
  Receive Date: 20110623
  Receipt Date: 20110610
  Transmission Date: 20111010
  Serious: Yes (Hospitalization, Other)
  Sender: FDA-Public Use
  Company Number: JP-ROCHE-776993

PATIENT
  Sex: Female
  Weight: 52 kg

DRUGS (11)
  1. CELECOXIB [Concomitant]
     Route: 048
  2. PYDOXAL [Concomitant]
     Route: 048
  3. ALOXI [Concomitant]
     Route: 041
     Dates: start: 20110330, end: 20110330
  4. XELODA [Suspect]
     Indication: METASTATIC GASTRIC CANCER
     Route: 048
     Dates: start: 20110330, end: 20110411
  5. EMEND [Concomitant]
     Route: 048
  6. HERCEPTIN [Suspect]
     Indication: METASTATIC GASTRIC CANCER
     Route: 041
     Dates: start: 20110330, end: 20110330
  7. GASMOTIN [Concomitant]
     Route: 048
  8. PROTECADIN [Concomitant]
     Route: 048
  9. REBAMIPIDE [Concomitant]
     Dosage: PERORAL AGENT
     Route: 048
  10. DECADRON [Concomitant]
     Route: 041
     Dates: start: 20110330, end: 20110330
  11. CISPLATIN [Suspect]
     Indication: METASTATIC GASTRIC CANCER
     Dosage: NOTE: DOSAGE IS UNCERTAIN
     Route: 041
     Dates: start: 20110330, end: 20110330

REACTIONS (7)
  - PLATELET COUNT DECREASED [None]
  - HAEMOGLOBIN DECREASED [None]
  - PANCYTOPENIA [None]
  - NEUTROPHIL COUNT DECREASED [None]
  - DIARRHOEA [None]
  - DECREASED APPETITE [None]
  - INFECTION [None]
